FAERS Safety Report 7482225-4 (Version None)
Quarter: 2011Q2

REPORT INFORMATION
  Report Type: 
  Country: None (occurrence: None)
  Receive Date: 20110516
  Receipt Date: 20110510
  Transmission Date: 20111010
  Serious: No
  Sender: FDA-Public Use
  Company Number: US-PFIZER INC-2011089350

PATIENT
  Sex: Female

DRUGS (3)
  1. GABAPENTIN [Suspect]
     Indication: RESTLESS LEGS SYNDROME
  2. GABAPENTIN [Suspect]
     Indication: NEURALGIA
     Dosage: 200 MG, 2X/DAY
  3. AMITRIPTYLINE [Concomitant]
     Dosage: 100 MG, QHS

REACTIONS (1)
  - DRUG INEFFECTIVE [None]
